FAERS Safety Report 7313603-1 (Version None)
Quarter: 2011Q1

REPORT INFORMATION
  Report Type: 
  Country: None (occurrence: None)
  Receive Date: 20110225
  Receipt Date: 20110214
  Transmission Date: 20110831
  Serious: Yes (Other)
  Sender: FDA-Public Use
  Company Number: CA-JNJFOC-20110205035

PATIENT
  Sex: Female

DRUGS (3)
  1. REMICADE [Suspect]
     Route: 042
  2. REMICADE [Suspect]
     Route: 042
  3. REMICADE [Suspect]
     Indication: CROHN'S DISEASE
     Dosage: 3RD LOADING DOSE
     Route: 042

REACTIONS (6)
  - INFLUENZA LIKE ILLNESS [None]
  - RESPIRATORY ARREST [None]
  - MUSCULOSKELETAL STIFFNESS [None]
  - INFUSION RELATED REACTION [None]
  - BACK PAIN [None]
  - VOMITING [None]
